FAERS Safety Report 7509256-X (Version None)
Quarter: 2011Q2

REPORT INFORMATION
  Report Type: 
  Country: None (occurrence: None)
  Receive Date: 20110527
  Receipt Date: 20110521
  Transmission Date: 20111010
  Serious: Yes (Life-Threatening, Other)
  Sender: FDA-Public Use
  Company Number: US-ABBOTT-11P-163-0728331-00

PATIENT

DRUGS (1)
  1. DEPAKOTE [Suspect]
     Indication: EPILEPSY

REACTIONS (2)
  - DRUG DOSE OMISSION [None]
  - CONVULSION [None]
